FAERS Safety Report 7305860-2 (Version None)
Quarter: 2011Q1

REPORT INFORMATION
  Report Type: 
  Country: None (occurrence: None)
  Receive Date: 20110222
  Receipt Date: 20110211
  Transmission Date: 20110831
  Serious: Yes (Death, Other)
  Sender: FDA-Public Use
  Company Number: BR-GENZYME-CERZ-1001844

PATIENT

DRUGS (2)
  1. MIGLUSTAT [Suspect]
     Indication: GAUCHER'S DISEASE
     Dosage: UNK UNK, UNK
     Route: 048
     Dates: start: 20101101
  2. CEREZYME [Suspect]
     Indication: GAUCHER'S DISEASE
     Dosage: 1200 U, Q2W
     Route: 042
     Dates: start: 20020424, end: 20100915

REACTIONS (2)
  - ASTROCYTOMA [None]
  - PALPITATIONS [None]
